FAERS Safety Report 10246845 (Version 3)
Quarter: 2015Q1

REPORT INFORMATION
  Report Type: Spontaneous
  Country: US (occurrence: US)
  Receive Date: 20140619
  Receipt Date: 20150224
  Transmission Date: 20150720
  Serious: Yes (Death, Hospitalization, Disabling, Other)
  Sender: FDA-Public Use
  Company Number: US-SA-2014SA078578

PATIENT
  Age: 63 Year
  Sex: Male
  Weight: 77.11 kg

DRUGS (13)
  1. PLAVIX [Suspect]
     Active Substance: CLOPIDOGREL BISULFATE
     Indication: MYOCARDIAL INFARCTION
     Route: 048
     Dates: start: 1994, end: 20060915
  2. TOPROL XL [Concomitant]
     Active Substance: METOPROLOL SUCCINATE
  3. OXYGEN. [Concomitant]
     Active Substance: OXYGEN
     Dosage: 3LPM  BY  NASAL  CANNULA
     Route: 045
  4. VITAMIN C [Concomitant]
     Active Substance: ASCORBIC ACID
  5. ASPIRIN. [Concomitant]
     Active Substance: ASPIRIN
  6. SPIRIVA [Concomitant]
     Active Substance: TIOTROPIUM BROMIDE MONOHYDRATE
  7. LISINOPRIL. [Concomitant]
     Active Substance: LISINOPRIL
  8. NEXIUM [Concomitant]
     Active Substance: ESOMEPRAZOLE MAGNESIUM
  9. PROVENTIL [Concomitant]
     Active Substance: ALBUTEROL
  10. ALBUTEROL. [Concomitant]
     Active Substance: ALBUTEROL
     Dosage: BY NEBULIZER
  11. CLONAZEPAM. [Concomitant]
     Active Substance: CLONAZEPAM
     Dosage: 1MG
  12. PREDNISONE. [Concomitant]
     Active Substance: PREDNISONE
  13. PAROXETINE [Concomitant]
     Active Substance: PAROXETINE\PAROXETINE HYDROCHLORIDE

REACTIONS (10)
  - Gastric ulcer haemorrhage [Fatal]
  - Abdominal distension [Unknown]
  - Oesophageal mass [Fatal]
  - Gastrointestinal haemorrhage [Unknown]
  - Intra-abdominal haemorrhage [Unknown]
  - Multiple injuries [Fatal]
  - Nausea [Unknown]
  - Chronic obstructive pulmonary disease [Unknown]
  - Haemorrhage subcutaneous [Unknown]
  - Thrombotic thrombocytopenic purpura [Unknown]

NARRATIVE: CASE EVENT DATE: 200505
